FAERS Safety Report 7099140-0 (Version None)
Quarter: 2010Q4

REPORT INFORMATION
  Report Type: 
  Country: None (occurrence: None)
  Receive Date: 20101112
  Receipt Date: 20101105
  Transmission Date: 20110411
  Serious: Yes (Hospitalization)
  Sender: FDA-Public Use
  Company Number: B0684109A

PATIENT
  Age: 38 Year
  Sex: Female

DRUGS (7)
  1. KIVEXA [Suspect]
     Route: 048
  2. STOCRIN [Suspect]
     Route: 065
     Dates: start: 20050701
  3. SODIUM PHOSPHATE [Concomitant]
     Route: 048
     Dates: start: 20060101
  4. GYNO DAKTARIN [Concomitant]
     Route: 067
     Dates: start: 20060201
  5. LIVOCAB [Concomitant]
     Route: 065
     Dates: start: 20050715
  6. CLEMASTINE FUMARATE [Concomitant]
     Route: 065
     Dates: start: 20060401
  7. MIZOLLEN [Concomitant]
     Route: 048
     Dates: start: 20060401

REACTIONS (2)
  - HEADACHE [None]
  - INFECTION [None]
